FAERS Safety Report 10096061 (Version 1)
Quarter: 2014Q2

REPORT INFORMATION
  Report Type: Spontaneous
  Country: US (occurrence: US)
  Receive Date: 20140422
  Receipt Date: 20140422
  Transmission Date: 20141212
  Serious: Yes (Hospitalization, Other)
  Sender: FDA-Public Use
  Company Number: US-TEVA-476240USA

PATIENT
  Sex: Female

DRUGS (30)
  1. OTFC [Suspect]
     Indication: SPINAL OSTEOARTHRITIS
     Route: 048
  2. FENTANYL [Concomitant]
     Indication: PAIN
  3. TRICOR [Concomitant]
     Indication: BLOOD CHOLESTEROL
  4. AMBIEN [Concomitant]
     Indication: SLEEP DISORDER
  5. MUCINEX [Concomitant]
     Indication: HYPERSENSITIVITY
     Dosage: 1 UNIT FOR 5 DAYS
  6. HUMULIN N [Concomitant]
     Indication: DIABETES MELLITUS
     Dosage: SLIDING SCALE
  7. CRESTOR [Concomitant]
     Indication: BLOOD CHOLESTEROL
  8. LANTUS [Concomitant]
     Indication: DIABETES MELLITUS
     Dosage: AT BEDTIME
     Route: 058
  9. NIASPAN ER [Concomitant]
     Indication: BLOOD CHOLESTEROL
  10. NITROSTAT [Concomitant]
     Indication: CHEST PAIN
  11. PLAVIX [Concomitant]
  12. PROAIR [Concomitant]
     Indication: DYSPNOEA
     Dosage: 2 PUFFS EVERY 4 HOURS AS NEEDED
  13. PROAIR [Concomitant]
     Indication: WHEEZING
  14. XANAX [Concomitant]
     Indication: ANXIETY
  15. ASPIRIN [Concomitant]
  16. DOXEPIN [Concomitant]
     Indication: SLEEP DISORDER
  17. LASIX [Concomitant]
     Indication: OEDEMA
  18. MECLIZINE [Concomitant]
     Indication: DIZZINESS
  19. MIRTAZAPINE [Concomitant]
     Indication: DEPRESSION
  20. PENTOXIFYLLINE [Concomitant]
     Indication: CARDIOVASCULAR INSUFFICIENCY
     Dosage: 800 MILLIGRAM DAILY;
  21. POTASSIUM CHLORIDE [Concomitant]
     Indication: NUTRITIONAL SUPPLEMENTATION
  22. PROMETHAZINE [Concomitant]
     Indication: NAUSEA
  23. PROMETHAZINE [Concomitant]
     Indication: VOMITING
  24. RAMIPRIL [Concomitant]
     Indication: BLOOD PRESSURE
  25. RAMIPRIL [Concomitant]
     Indication: CARDIAC DISORDER
  26. ZOLOFT [Concomitant]
     Indication: DEPRESSION
  27. TRAZODONE [Concomitant]
     Indication: SLEEP DISORDER
  28. EFFEXOR [Concomitant]
     Indication: DEPRESSION
  29. VITAMIN E [Concomitant]
     Indication: NUTRITIONAL SUPPLEMENTATION
  30. VITAMIN B12 [Concomitant]
     Indication: NUTRITIONAL SUPPLEMENTATION
     Dosage: 1000 MICROGRAM DAILY;

REACTIONS (2)
  - Pneumonia [Recovered/Resolved]
  - Off label use [Unknown]
